FAERS Safety Report 10132902 (Version 2)
Quarter: 2014Q2

REPORT INFORMATION
  Report Type: Report from Study
  Country: JP (occurrence: JP)
  Receive Date: 20140428
  Receipt Date: 20140428
  Transmission Date: 20141212
  Serious: Yes (Other)
  Sender: FDA-Public Use
  Company Number: JP-JNJFOC-20130814843

PATIENT
  Age: 90 Year
  Sex: Male
  Weight: 61 kg

DRUGS (10)
  1. XARELTO [Suspect]
     Indication: THROMBOSIS PROPHYLAXIS
     Route: 048
     Dates: start: 20130725
  2. XARELTO [Suspect]
     Indication: CEREBROVASCULAR ACCIDENT PROPHYLAXIS
     Route: 048
     Dates: start: 20130725
  3. TAKEPRON [Concomitant]
     Indication: PROPHYLAXIS
     Route: 048
  4. SPIRIVA [Concomitant]
     Route: 055
     Dates: end: 20130906
  5. MUCOTRON [Concomitant]
     Route: 048
  6. THEODUR [Concomitant]
     Route: 048
  7. LASIX [Concomitant]
     Route: 048
  8. DIOVAN [Concomitant]
     Route: 048
  9. REBAMIPIDE [Concomitant]
     Indication: PROPHYLAXIS
     Route: 048
  10. PLAVIX [Concomitant]
     Route: 048

REACTIONS (1)
  - Cerebral infarction [Recovering/Resolving]
